FAERS Safety Report 6157137-9 (Version None)
Quarter: 2009Q2

REPORT INFORMATION
  Report Type: 
  Country: None (occurrence: None)
  Receive Date: 20090416
  Receipt Date: 20090407
  Transmission Date: 20091009
  Serious: Yes (Other)
  Sender: FDA-Public Use
  Company Number: FR-BAXTER-2009BH005353

PATIENT
  Age: 22 Year
  Sex: Male

DRUGS (8)
  1. SUPRANE [Suspect]
     Indication: ANAESTHESIA
     Route: 055
     Dates: start: 20090321, end: 20090321
  2. SUPRANE [Suspect]
     Route: 055
     Dates: start: 20090321, end: 20090321
  3. PROPOFOL [Suspect]
     Indication: ANAESTHESIA
     Route: 065
     Dates: start: 20090321, end: 20090321
  4. SUCCINYLCHOLINE CHLORIDE [Suspect]
     Indication: ANAESTHESIA
     Route: 042
     Dates: start: 20090321, end: 20090321
  5. SUFENTA PRESERVATIVE FREE [Suspect]
     Indication: ANAESTHESIA
     Route: 065
     Dates: start: 20090321, end: 20090321
  6. MORPHINE [Concomitant]
     Indication: ANALGESIA
     Route: 065
     Dates: start: 20090321, end: 20090321
  7. ACETAMINOPHEN [Concomitant]
     Indication: ANALGESIA
     Route: 065
     Dates: start: 20090321, end: 20090321
  8. HYPNOVEL [Concomitant]
     Indication: SEDATION
     Route: 065
     Dates: start: 20090321, end: 20090321

REACTIONS (2)
  - COMPARTMENT SYNDROME [None]
  - HYPERTHERMIA MALIGNANT [None]
